FAERS Safety Report 10070343 (Version 1)
Quarter: 2014Q2

REPORT INFORMATION
  Report Type: Spontaneous
  Country: US (occurrence: None)
  Receive Date: 20140409
  Receipt Date: 20140409
  Transmission Date: 20141212
  Serious: Yes (Hospitalization)
  Sender: FDA-Public Use
  Company Number: None

PATIENT
  Age: 79 Year
  Sex: Male
  Weight: 80.4 kg

DRUGS (1)
  1. ALFA 2 INTERFERON 2B (INTRON-A) [Suspect]
     Dates: start: 20140327

REACTIONS (13)
  - Diarrhoea [None]
  - Dizziness [None]
  - Loss of consciousness [None]
  - Nausea [None]
  - Vomiting [None]
  - Syncope [None]
  - Dehydration [None]
  - Syncope [None]
  - Decreased appetite [None]
  - Sluggishness [None]
  - Depression [None]
  - Orthostatic hypotension [None]
  - Bradycardia [None]
